FAERS Safety Report 7406580-6 (Version None)
Quarter: 2011Q2

REPORT INFORMATION
  Report Type: 
  Country: None (occurrence: None)
  Receive Date: 20110406
  Receipt Date: 20110406
  Transmission Date: 20111010
  Serious: No
  Sender: FDA-Public Use
  Company Number: None

PATIENT
  Age: 29 Year
  Sex: Female
  Weight: 67.1324 kg

DRUGS (1)
  1. COPAXONE [Suspect]
     Indication: MULTIPLE SCLEROSIS
     Dosage: 20MG Q DAY SUBCUTANEOUSLY
     Route: 058
     Dates: start: 20110128, end: 20110307

REACTIONS (2)
  - FEELING ABNORMAL [None]
  - DISTURBANCE IN ATTENTION [None]
